FAERS Safety Report 17205822 (Version 1)
Quarter: 2019Q4

REPORT INFORMATION
  Report Type: Spontaneous
  Country: JP (occurrence: JP)
  Receive Date: 20191227
  Receipt Date: 20191227
  Transmission Date: 20200122
  Serious: Yes (Other)
  Sender: FDA-Public Use
  Company Number: JP-ALKEM LABORATORIES LIMITED-JP-ALKEM-2019-07914

PATIENT
  Age: 69 Year
  Sex: Male

DRUGS (3)
  1. CYCLOSPORINE. [Suspect]
     Active Substance: CYCLOSPORINE
     Dosage: 50 MILLIGRAM, QD
     Route: 065
  2. MYCOPHENOLATE MOFETIL. [Suspect]
     Active Substance: MYCOPHENOLATE MOFETIL
     Indication: IMMUNOSUPPRESSANT DRUG THERAPY
     Dosage: 1000 MILLIGRAM, QD
     Route: 065
  3. CYCLOSPORINE. [Suspect]
     Active Substance: CYCLOSPORINE
     Indication: IMMUNOSUPPRESSANT DRUG THERAPY
     Dosage: 75 MILLIGRAM, QD
     Route: 065

REACTIONS (2)
  - Post transplant lymphoproliferative disorder [Unknown]
  - Epstein-Barr virus test positive [Unknown]
